FAERS Safety Report 7204293-7 (Version None)
Quarter: 2010Q4

REPORT INFORMATION
  Report Type: 
  Country: None (occurrence: None)
  Receive Date: 20101220
  Receipt Date: 20101209
  Transmission Date: 20110411
  Serious: Yes (Hospitalization)
  Sender: FDA-Public Use
  Company Number: 023500

PATIENT
  Sex: Female

DRUGS (7)
  1. KEPPRA [Suspect]
     Indication: EPILEPSY
     Dosage: (750 MG TID ORAL)
     Route: 048
     Dates: start: 19950101
  2. DEPAKINE CHRONO /01294701/ (DEPAKINE CHRONO) [Suspect]
     Indication: EPILEPSY
     Dosage: (500 MG TID, 500 MG 1-0.5-1 ORAL)
     Route: 048
     Dates: start: 19950101, end: 20101106
  3. NEXIUM [Suspect]
     Dosage: (40 MG QD ORAL)
     Route: 048
  4. EXELON [Suspect]
     Indication: DEMENTIA
     Dosage: (4.6 MG QD TRANSDERMAL)
     Route: 062
  5. CINNAGERON (CINNAGERON) (NOT SPECIFIED) [Suspect]
     Dosage: (75 MG QD ORAL)
     Route: 048
  6. ELTROXIN (ELTROXIN) (NOT SPECIFIED) [Suspect]
     Indication: HYPOTHYROIDISM
     Dosage: (0.075 MG, 0.05 MG 1,5 TIMES DAILY ORAL)
     Route: 048
     Dates: start: 20090101
  7. VITAMIN D [Concomitant]

REACTIONS (21)
  - AMNESIA [None]
  - ANTICONVULSANT DRUG LEVEL DECREASED [None]
  - ASTHENIA [None]
  - BICYTOPENIA [None]
  - BRADYKINESIA [None]
  - CACHEXIA [None]
  - DRUG TOXICITY [None]
  - EXTRAPYRAMIDAL DISORDER [None]
  - FALL [None]
  - FATIGUE [None]
  - FLAT AFFECT [None]
  - HYPOALBUMINAEMIA [None]
  - HYPOTHYROIDISM [None]
  - JOINT SPRAIN [None]
  - LOSS OF CONSCIOUSNESS [None]
  - MALNUTRITION [None]
  - MUSCULAR WEAKNESS [None]
  - PAIN IN EXTREMITY [None]
  - TREMOR [None]
  - VISUAL IMPAIRMENT [None]
  - WEIGHT DECREASED [None]
